FAERS Safety Report 7016238-3 (Version None)
Quarter: 2010Q3

REPORT INFORMATION
  Report Type: 
  Country: None (occurrence: None)
  Receive Date: 20100927
  Receipt Date: 20091105
  Transmission Date: 20110219
  Serious: No
  Sender: FDA-Public Use
  Company Number: US-ASTRAZENECA-2009SE24638

PATIENT
  Age: 28 Year
  Sex: Male

DRUGS (2)
  1. ARIMIDEX [Suspect]
     Indication: HORMONE THERAPY
     Dosage: HALF OF 1 MG TABLET EVERY OTHER DAY
     Route: 048
     Dates: start: 20090901, end: 20091030
  2. TESTOSTERONE THERAPY [Concomitant]

REACTIONS (4)
  - ARTHRALGIA [None]
  - ERECTILE DYSFUNCTION [None]
  - LOSS OF LIBIDO [None]
  - OESTRADIOL DECREASED [None]
